FAERS Safety Report 20642821 (Version 1)
Quarter: 2022Q1

REPORT INFORMATION
  Report Type: Spontaneous
  Country: US (occurrence: US)
  Receive Date: 20220328
  Receipt Date: 20220328
  Transmission Date: 20220424
  Serious: Yes (Other)
  Sender: FDA-Public Use
  Company Number: US-GLAXOSMITHKLINE-US2021GSK060337

PATIENT
  Sex: Female

DRUGS (2)
  1. ZANTAC [Suspect]
     Active Substance: RANITIDINE HYDROCHLORIDE
     Indication: Product used for unknown indication
     Dosage: UNK
     Route: 065
  2. ZANTAC [Suspect]
     Active Substance: RANITIDINE HYDROCHLORIDE
     Indication: Product used for unknown indication
     Dosage: UNK (4 TO 5 TIMES PER WEEK)
     Route: 065

REACTIONS (15)
  - Breast cancer [Unknown]
  - Breast cancer female [Unknown]
  - Breast cancer metastatic [Unknown]
  - Breast cancer in situ [Unknown]
  - Invasive breast carcinoma [Unknown]
  - Invasive ductal breast carcinoma [Unknown]
  - Breast neoplasm [Unknown]
  - Amastia [Unknown]
  - Breast pain [Unknown]
  - Fibrocystic breast disease [Unknown]
  - Fibroadenoma of breast [Unknown]
  - Breast mass [Unknown]
  - Breast disorder [Unknown]
  - Breast calcifications [Unknown]
  - Pruritus [Unknown]
